FAERS Safety Report 24585769 (Version 1)
Quarter: 2024Q4

REPORT INFORMATION
  Report Type: Report from Study
  Country: EG (occurrence: EG)
  Receive Date: 20241106
  Receipt Date: 20241106
  Transmission Date: 20250114
  Serious: Yes (Hospitalization, Other)
  Sender: ABBVIE
  Company Number: EG-ABBVIE-5984229

PATIENT
  Age: 6 Year
  Sex: Female

DRUGS (6)
  1. HUMIRA [Suspect]
     Active Substance: ADALIMUMAB
     Indication: Uveitis
     Dosage: FORM STRENGTH: 40 MILLIGRAM
     Route: 058
     Dates: start: 2010
  2. HUMIRA [Suspect]
     Active Substance: ADALIMUMAB
     Dosage: 1 SYRINGE, FORM STRENGTH: 40 MILLIGRAM
     Route: 058
     Dates: end: 2023
  3. HUMIRA [Suspect]
     Active Substance: ADALIMUMAB
     Dosage: 1 SYRINGE, FORM STRENGTH: 40 MILLIGRAM
     Route: 058
     Dates: start: 2023, end: 2023
  4. HUMIRA [Suspect]
     Active Substance: ADALIMUMAB
     Dosage: 1 SYRINGE, FORM STRENGTH: 40 MILLIGRAM
     Route: 058
     Dates: start: 202405
  5. HUMIRA [Suspect]
     Active Substance: ADALIMUMAB
     Dosage: 1 SYRINGE, FORM STRENGTH: 40 MILLIGRAM
     Route: 058
     Dates: start: 2023, end: 202405
  6. CORTISONE [Concomitant]
     Active Substance: CORTISONE
     Indication: Product used for unknown indication
     Dosage: START DATE TEXT: STARTED WITH HUMIRA
     Dates: start: 2010

REACTIONS (9)
  - Glaucoma [Recovered/Resolved]
  - Bone disorder [Unknown]
  - Muscle atrophy [Recovered/Resolved]
  - Eye inflammation [Recovered/Resolved]
  - Swelling [Recovering/Resolving]
  - Eye inflammation [Recovered/Resolved]
  - Glaucoma [Recovered/Resolved]
  - Electric shock sensation [Unknown]
  - Dwarfism [Not Recovered/Not Resolved]

NARRATIVE: CASE EVENT DATE: 20120101
